FAERS Safety Report 21134696 (Version 1)
Quarter: 2022Q3

REPORT INFORMATION
  Report Type: Spontaneous
  Country: US (occurrence: US)
  Receive Date: 20220727
  Receipt Date: 20220727
  Transmission Date: 20221027
  Serious: No
  Sender: FDA-Public Use
  Company Number: US-ELI_LILLY_AND_COMPANY-US202207004250

PATIENT
  Age: 66 Year
  Sex: Male

DRUGS (2)
  1. HUMULIN R [Suspect]
     Active Substance: INSULIN HUMAN
     Indication: Type 2 diabetes mellitus
     Dosage: 130 U, EACH MORNING
     Route: 058
     Dates: start: 2021
  2. HUMULIN R [Suspect]
     Active Substance: INSULIN HUMAN
     Dosage: 130 U, EACH EVENING
     Route: 058
     Dates: start: 2021

REACTIONS (2)
  - Blood glucose increased [Unknown]
  - Peripheral swelling [Unknown]

NARRATIVE: CASE EVENT DATE: 20220501
